FAERS Safety Report 5057334-X (Version None)
Quarter: 2006Q3

REPORT INFORMATION
  Report Type: 
  Country: None (occurrence: None)
  Receive Date: 20060721
  Receipt Date: 20050815
  Transmission Date: 20061208
  Serious: No
  Sender: FDA-Public Use
  Company Number: US-GLAXOSMITHKLINE-A0570268A

PATIENT
  Age: 71 Year
  Sex: Female

DRUGS (7)
  1. AVANDIA [Suspect]
     Dosage: 4MG TWICE PER DAY
     Route: 048
  2. AVANDAMET [Suspect]
     Dosage: 1TAB TWICE PER DAY
     Route: 048
  3. METFORMIN [Suspect]
     Route: 065
  4. GLIPIZIDE [Concomitant]
  5. VYTORIN [Concomitant]
  6. FUROSEMIDE [Concomitant]
  7. GLUCOPHAGE [Concomitant]

REACTIONS (5)
  - ARTHRALGIA [None]
  - BLOOD GLUCOSE INCREASED [None]
  - FLUID RETENTION [None]
  - OEDEMA PERIPHERAL [None]
  - WEIGHT INCREASED [None]
